FAERS Safety Report 18184298 (Version 1)
Quarter: 2020Q3

REPORT INFORMATION
  Report Type: Spontaneous
  Country: FR (occurrence: FR)
  Receive Date: 20200824
  Receipt Date: 20200824
  Transmission Date: 20201103
  Serious: Yes (Other)
  Sender: FDA-Public Use
  Company Number: FR-AUROBINDO-AUR-APL-2020-039975

PATIENT
  Age: 64 Year
  Sex: Male
  Weight: 82 kg

DRUGS (1)
  1. MONTELUKAST [Suspect]
     Active Substance: MONTELUKAST SODIUM
     Indication: ASTHMA
     Dosage: 5 MILLIGRAM, ONCE A DAY
     Route: 048
     Dates: start: 20191002, end: 20200227

REACTIONS (2)
  - Anxiety [Unknown]
  - Alcoholism [Unknown]

NARRATIVE: CASE EVENT DATE: 201911
